FAERS Safety Report 7002204-0 (Version None)
Quarter: 2010Q3

REPORT INFORMATION
  Report Type: 
  Country: None (occurrence: None)
  Receive Date: 20100920
  Receipt Date: 20100908
  Transmission Date: 20110219
  Serious: Yes (Hospitalization)
  Sender: FDA-Public Use
  Company Number: DE-ELI_LILLY_AND_COMPANY-DE201008007228

PATIENT
  Sex: Male
  Weight: 80 kg

DRUGS (9)
  1. PEMETREXED [Suspect]
     Indication: NON-SMALL CELL LUNG CANCER
     Dosage: 980 MG, OTHER
     Route: 042
     Dates: start: 20100817, end: 20100817
  2. CISPLATIN [Suspect]
     Indication: NON-SMALL CELL LUNG CANCER
     Dosage: 147 MG, OTHER
     Route: 042
     Dates: start: 20100817, end: 20100817
  3. ASPIRIN [Concomitant]
  4. CONCOR [Concomitant]
  5. ENAHEXAL                           /00574902/ [Concomitant]
  6. SIMVASTATIN [Concomitant]
  7. ALDACTONE [Concomitant]
  8. KALITRON [Concomitant]
  9. SODIUM CHLORIDE [Concomitant]

REACTIONS (1)
  - CARDIOMYOPATHY [None]
